FAERS Safety Report 8641105 (Version 3)
Quarter: 2013Q1

REPORT INFORMATION
  Report Type: Spontaneous
  Country: FR (occurrence: FR)
  Receive Date: 20120628
  Receipt Date: 20130123
  Transmission Date: 20140127
  Serious: Yes (Hospitalization)
  Sender: FDA-Public Use
  Company Number: FR-PFIZER INC-2012149318

PATIENT
  Age: 40 Year
  Sex: Female

DRUGS (5)
  1. TAHOR [Suspect]
     Dosage: 10 MG (1 DF) DAILY
     Route: 048
     Dates: start: 2003, end: 20120430
  2. CERAZETTE [Suspect]
     Dosage: 0.075 MG (1 TABLET) DAILY
     Route: 048
     Dates: start: 2005, end: 20120430
  3. KARDEGIC [Concomitant]
     Dosage: 75 MG, 1X/DAY
     Route: 048
  4. SECTRAL [Concomitant]
     Dosage: 200 MG, DAILY
     Route: 048
     Dates: start: 2003
  5. ATACAND [Concomitant]
     Dosage: 8 MG, DAILY
     Route: 048
     Dates: start: 2010

REACTIONS (4)
  - Hepatitis [Recovered/Resolved]
  - Hepatocellular injury [Recovered/Resolved]
  - Cholestasis [Recovered/Resolved]
  - Ocular icterus [Recovered/Resolved]
